FAERS Safety Report 19821289 (Version 2)
Quarter: 2021Q3

REPORT INFORMATION
  Report Type: Other
  Country: PE (occurrence: PE)
  Receive Date: 20210913
  Receipt Date: 20210916
  Transmission Date: 20211014
  Serious: Yes (Hospitalization)
  Sender: FDA-Public Use
  Company Number: PE-ROCHE-2844922

PATIENT
  Age: 53 Year
  Sex: Female

DRUGS (1)
  1. ACTEMRA [Suspect]
     Active Substance: TOCILIZUMAB
     Indication: RHEUMATOID ARTHRITIS
     Route: 058
     Dates: start: 20190307

REACTIONS (2)
  - Oxygen saturation decreased [Recovering/Resolving]
  - COVID-19 [Recovering/Resolving]
